FAERS Safety Report 24264731 (Version 3)
Quarter: 2024Q4

REPORT INFORMATION
  Report Type: Spontaneous
  Country: US (occurrence: US)
  Receive Date: 20240829
  Receipt Date: 20241205
  Transmission Date: 20250115
  Serious: Yes (Death)
  Sender: PFIZER
  Company Number: US-PFIZER INC-202400233475

PATIENT
  Age: 72 Year
  Sex: Female
  Weight: 92.517 kg

DRUGS (3)
  1. IBRANCE [Suspect]
     Active Substance: PALBOCICLIB
     Indication: Breast cancer
     Dosage: UNK, 1X/DAY
     Route: 048
     Dates: start: 2023
  2. IBRANCE [Suspect]
     Active Substance: PALBOCICLIB
     Dosage: ORAL/ 125 MG/ 21 DAYS ON 7 DAYS OFF
     Route: 048
  3. KISQALI [Concomitant]
     Active Substance: RIBOCICLIB
     Indication: Breast cancer
     Dosage: UNK

REACTIONS (2)
  - Death [Fatal]
  - Weight increased [Unknown]

NARRATIVE: CASE EVENT DATE: 20240815
